FAERS Safety Report 6317483-2 (Version None)
Quarter: 2009Q3

REPORT INFORMATION
  Report Type: 
  Country: None (occurrence: None)
  Receive Date: 20090821
  Receipt Date: 20090817
  Transmission Date: 20100115
  Serious: Yes (Other)
  Sender: FDA-Public Use
  Company Number: BR-JNJFOC-20090804324

PATIENT
  Age: 19 Year
  Sex: Female
  Weight: 49 kg

DRUGS (5)
  1. ORTHO EVRA [Suspect]
     Indication: CONTRACEPTION
     Dosage: NORELGESTROMIN 6 MG/ ETHINYL ESTRADIOL 0.6 MG
     Route: 062
  2. CEFADROXIL [Interacting]
     Indication: COUGH
     Route: 065
  3. PREDNISOLONE [Interacting]
     Indication: COUGH
     Route: 065
  4. FILINAR [Suspect]
     Indication: COUGH
     Route: 065
  5. BUDESONIDE-FORMOTEROL [Concomitant]
     Indication: ASTHMA
     Route: 065

REACTIONS (5)
  - COUGH [None]
  - DRUG INTERACTION [None]
  - DYSMENORRHOEA [None]
  - LYMPHOPENIA [None]
  - MEDICATION ERROR [None]
